FAERS Safety Report 15771407 (Version 2)
Quarter: 2019Q1

REPORT INFORMATION
  Report Type: Spontaneous
  Country: JP (occurrence: JP)
  Receive Date: 20181228
  Receipt Date: 20190107
  Transmission Date: 20190417
  Serious: Yes (Hospitalization)
  Sender: FDA-Public Use
  Company Number: JP-BAYER-2018-245565

PATIENT
  Age: 66 Year
  Sex: Female
  Weight: 51.3 kg

DRUGS (6)
  1. STIVARGA [Suspect]
     Active Substance: REGORAFENIB
     Indication: COLORECTAL CANCER METASTATIC
     Dosage: DAILY DOSE 2 DF
     Route: 048
     Dates: start: 20140613, end: 20140627
  2. UREPEARL [Concomitant]
     Active Substance: UREA
     Indication: DRUG TOXICITY PROPHYLAXIS
     Dosage: UNK UNK, PRN
     Dates: start: 20140502, end: 20140525
  3. DEXTROMETHORPHAN HYDROBROMIDE. [Concomitant]
     Active Substance: DEXTROMETHORPHAN HYDROBROMIDE
     Indication: COLORECTAL CANCER METASTATIC
     Dosage: 3 DF, TID
     Route: 048
     Dates: start: 20140516
  4. BETAMETHASONE. [Concomitant]
     Active Substance: BETAMETHASONE
     Indication: DRUG TOXICITY PROPHYLAXIS
     Dosage: UNK UNK, PRN
     Route: 065
     Dates: start: 20140502, end: 20140525
  5. STIVARGA [Suspect]
     Active Substance: REGORAFENIB
     Indication: COLORECTAL CANCER METASTATIC
     Dosage: DAILY DOSE 1 DF
     Route: 048
     Dates: start: 20140718, end: 20140725
  6. STIVARGA [Suspect]
     Active Substance: REGORAFENIB
     Indication: COLORECTAL CANCER METASTATIC
     Dosage: DAILY DOSE 3 DF
     Route: 048
     Dates: start: 20140502

REACTIONS (6)
  - Pain in extremity [Recovering/Resolving]
  - Palmar-plantar erythrodysaesthesia syndrome [None]
  - Plantar erythema [None]
  - Palmar-plantar erythrodysaesthesia syndrome [Recovered/Resolved]
  - Palmoplantar keratoderma [None]
  - Gait disturbance [None]

NARRATIVE: CASE EVENT DATE: 20140517
